FAERS Safety Report 26107876 (Version 1)
Quarter: 2025Q4

REPORT INFORMATION
  Report Type: Spontaneous
  Country: US (occurrence: None)
  Receive Date: 20251127
  Receipt Date: 20251127
  Transmission Date: 20260117
  Serious: Yes (Disabling, Other)
  Sender: FDA-CTU
  Company Number: None

PATIENT
  Age: 42 Year
  Sex: Female
  Weight: 121.5 kg

DRUGS (3)
  1. ZEPBOUND [Suspect]
     Active Substance: TIRZEPATIDE
     Indication: Obesity
     Dosage: OTHER FREQUENCY : WEEKLY;?
     Route: 058
     Dates: start: 20240501, end: 20250525
  2. UNSPECIFIED INGREDIENT [Concomitant]
     Active Substance: UNSPECIFIED INGREDIENT
  3. CPAP device [Concomitant]

REACTIONS (10)
  - Musculoskeletal pain [None]
  - Spinal pain [None]
  - Asthenia [None]
  - Dysstasia [None]
  - Tremor [None]
  - Nervous system disorder [None]
  - Mobility decreased [None]
  - Intermenstrual bleeding [None]
  - Menstruation irregular [None]
  - Loss of personal independence in daily activities [None]

NARRATIVE: CASE EVENT DATE: 20250406
